FAERS Safety Report 19931507 (Version 1)
Quarter: 2021Q4

REPORT INFORMATION
  Report Type: Spontaneous
  Country: US (occurrence: US)
  Receive Date: 20211008
  Receipt Date: 20211008
  Transmission Date: 20220303
  Serious: No
  Sender: FDA-Public Use
  Company Number: US-009507513-2110USA001201

PATIENT
  Sex: Female

DRUGS (2)
  1. PROVENTIL [Suspect]
     Active Substance: ALBUTEROL
     Dosage: 2 PUFFS TWICE A DAY
     Dates: start: 2010, end: 202104
  2. VENTOLIN [Suspect]
     Active Substance: ALBUTEROL SULFATE
     Indication: Asthma
     Dosage: 2 PUFFS TWICE A DAY
     Route: 048
     Dates: start: 202104

REACTIONS (2)
  - Dyspnoea [Not Recovered/Not Resolved]
  - Chest discomfort [Not Recovered/Not Resolved]

NARRATIVE: CASE EVENT DATE: 20210101
